FAERS Safety Report 7218974-2 (Version None)
Quarter: 2011Q1

REPORT INFORMATION
  Report Type: 
  Country: None (occurrence: None)
  Receive Date: 20110111
  Receipt Date: 20110105
  Transmission Date: 20110831
  Serious: Yes (Hospitalization)
  Sender: FDA-Public Use
  Company Number: BR-BIOGENIDEC-2010BI040265

PATIENT
  Age: 31 Year
  Sex: Female

DRUGS (3)
  1. CEPHALEXIN [Concomitant]
     Indication: URINARY TRACT INFECTION
     Dates: start: 20101001
  2. AVONEX [Suspect]
     Indication: MULTIPLE SCLEROSIS
     Route: 030
     Dates: start: 20090701, end: 20100301
  3. MULTI-VITAMINS [Concomitant]
     Indication: PREGNANCY
     Dates: start: 20100101, end: 20101201

REACTIONS (1)
  - PREMATURE LABOUR [None]
